FAERS Safety Report 8434460-6 (Version None)
Quarter: 2012Q2

REPORT INFORMATION
  Report Type: 
  Country: None (occurrence: None)
  Receive Date: 20120614
  Receipt Date: 20120604
  Transmission Date: 20120825
  Serious: Yes (Hospitalization, Disabling, Other)
  Sender: FDA-Public Use
  Company Number: IT-BIOGENIDEC-2011BI016680

PATIENT
  Age: 14 Year
  Sex: Female

DRUGS (7)
  1. PREDNISONE TAB [Concomitant]
     Dates: start: 20101001
  2. TYSABRI [Suspect]
     Indication: RELAPSING-REMITTING MULTIPLE SCLEROSIS
     Route: 042
     Dates: start: 20100517, end: 20101201
  3. METHYLPREDNISOLONE [Concomitant]
     Dates: start: 20101001
  4. METHYLPREDNISOLONE [Concomitant]
     Dates: start: 20111001
  5. METHYLPREDNISOLONE [Concomitant]
     Route: 042
     Dates: start: 20101201
  6. METHYLPREDNISOLONE [Concomitant]
     Dates: start: 20120118
  7. METHYLPREDNISOLONE [Concomitant]
     Route: 042
     Dates: start: 20110331

REACTIONS (4)
  - CONVULSION [None]
  - IMMUNE RECONSTITUTION SYNDROME [None]
  - PROGRESSIVE MULTIFOCAL LEUKOENCEPHALOPATHY [None]
  - MULTIPLE SCLEROSIS RELAPSE [None]
